FAERS Safety Report 11171169 (Version 1)
Quarter: 2015Q2

REPORT INFORMATION
  Report Type: Spontaneous
  Country: US (occurrence: US)
  Receive Date: 20150608
  Receipt Date: 20150608
  Transmission Date: 20150821
  Serious: No
  Sender: FDA-Public Use
  Company Number: US-DRREDDYS-USA/USA/15/0046500

PATIENT
  Age: 59 Year
  Sex: Female
  Weight: 46.2 kg

DRUGS (3)
  1. MUCINEX ALLERGY [Suspect]
     Active Substance: FEXOFENADINE HYDROCHLORIDE
     Indication: RHINORRHOEA
  2. MUCINEX ALLERGY [Suspect]
     Active Substance: FEXOFENADINE HYDROCHLORIDE
     Indication: SNEEZING
  3. MUCINEX ALLERGY [Suspect]
     Active Substance: FEXOFENADINE HYDROCHLORIDE
     Indication: HYPERSENSITIVITY
     Route: 065
     Dates: start: 20150223, end: 20150305

REACTIONS (2)
  - Wrong technique in drug usage process [Unknown]
  - Insomnia [Recovered/Resolved]
